FAERS Safety Report 8379820-7 (Version None)
Quarter: 2012Q2

REPORT INFORMATION
  Report Type: 
  Country: None (occurrence: None)
  Receive Date: 20120523
  Receipt Date: 20120516
  Transmission Date: 20120825
  Serious: Yes (Other)
  Sender: FDA-Public Use
  Company Number: US-CELGENEUS-163-21880-12051941

PATIENT
  Sex: Male
  Weight: 53.572 kg

DRUGS (13)
  1. VITAMIN A [Concomitant]
     Route: 065
  2. VITAMIN B-12 [Concomitant]
     Route: 065
  3. VITAMIN B COM [Concomitant]
     Route: 065
  4. ASPIRIN [Concomitant]
     Route: 065
  5. LOVAZA [Concomitant]
     Route: 065
  6. DULERA [Concomitant]
     Route: 065
  7. AMLODIPINE BESYLATE [Concomitant]
     Route: 065
  8. POTASSIUM CHLORIDE [Concomitant]
     Route: 065
  9. SELENIUM [Concomitant]
     Route: 065
  10. ASCORBIC ACID [Concomitant]
     Route: 065
  11. REVLIMID [Suspect]
     Indication: MULTIPLE MYELOMA
     Dosage: 5 MILLIGRAM
     Route: 048
     Dates: start: 20120101
  12. VITAMIN D [Concomitant]
     Route: 065
  13. VITAMIN E [Concomitant]
     Route: 065

REACTIONS (1)
  - NEPHROLITHIASIS [None]
